FAERS Safety Report 7603261-0 (Version None)
Quarter: 2011Q3

REPORT INFORMATION
  Report Type: 
  Country: None (occurrence: None)
  Receive Date: 20110712
  Receipt Date: 20110701
  Transmission Date: 20111222
  Serious: Yes (Hospitalization)
  Sender: FDA-Public Use
  Company Number: AU-JNJFOC-20070104558

PATIENT
  Sex: Male

DRUGS (13)
  1. FLUCONAZOLE [Concomitant]
     Indication: ANTIFUNGAL PROPHYLAXIS
     Dates: start: 19940101
  2. VALACYCLOVIR HYDROCHLORIDE [Concomitant]
     Indication: PROPHYLAXIS
     Dates: start: 19990101, end: 20070111
  3. VITAMIN E [Concomitant]
     Indication: GENERAL PHYSICAL CONDITION
     Dates: start: 20020101
  4. TMC114 [Suspect]
     Route: 048
  5. TMC114 [Suspect]
     Indication: HIV INFECTION
     Route: 048
     Dates: start: 20060802
  6. ASCORBIC ACID [Concomitant]
     Indication: GENERAL PHYSICAL CONDITION
     Dates: start: 20020101
  7. ISENTRESS [Suspect]
     Indication: HIV INFECTION
     Route: 048
     Dates: start: 20060802
  8. DELAVIRDINE MESYLATE [Concomitant]
     Indication: HIV INFECTION
     Route: 048
     Dates: start: 20060802
  9. TRUVADA [Concomitant]
     Indication: HIV INFECTION
     Dosage: 200/300 MG DAILY
     Route: 048
     Dates: start: 20060802
  10. BACTRIM DS [Concomitant]
     Indication: ANTIFUNGAL PROPHYLAXIS
     Dates: start: 19930929
  11. AZITHROMYCIN [Concomitant]
     Indication: PROPHYLAXIS
     Dates: start: 19970922
  12. RITONAVIR [Suspect]
     Indication: HIV INFECTION
     Route: 048
     Dates: start: 20060802
  13. OMEGA-3 MARINE TRIGLYCERIDES [Concomitant]
     Indication: GENERAL PHYSICAL CONDITION
     Dates: start: 20040318

REACTIONS (1)
  - HERPES SIMPLEX [None]
